FAERS Safety Report 8153605-9 (Version None)
Quarter: 2012Q1

REPORT INFORMATION
  Report Type: 
  Country: None (occurrence: None)
  Receive Date: 20120221
  Receipt Date: 20120213
  Transmission Date: 20120608
  Serious: Yes (Hospitalization)
  Sender: FDA-Public Use
  Company Number: US-ABBOTT-12P-163-0904206-00

PATIENT
  Sex: Female

DRUGS (7)
  1. NORVASC [Concomitant]
     Indication: HYPERTENSION
  2. MULTI-VITAMIN [Concomitant]
     Indication: SUPPLEMENTATION THERAPY
  3. NORTRIPTYLINE HCL [Concomitant]
     Indication: FIBROMYALGIA
  4. PRILOSEC [Concomitant]
     Indication: GASTROOESOPHAGEAL REFLUX DISEASE
  5. VITAMIN B-12 [Concomitant]
     Indication: SUPPLEMENTATION THERAPY
  6. HUMIRA [Suspect]
     Indication: CROHN'S DISEASE
     Dates: start: 20080101, end: 20111220
  7. CLONAZEPAM [Concomitant]
     Indication: INSOMNIA

REACTIONS (7)
  - BLOOD POTASSIUM DECREASED [None]
  - ABDOMINAL DISTENSION [None]
  - DEHYDRATION [None]
  - VOMITING [None]
  - BLOOD IRON DECREASED [None]
  - INTESTINAL OBSTRUCTION [None]
  - DIARRHOEA [None]
